FAERS Safety Report 17545434 (Version 1)
Quarter: 2020Q1

REPORT INFORMATION
  Report Type: Spontaneous
  Country: CA (occurrence: CA)
  Receive Date: 20200316
  Receipt Date: 20200316
  Transmission Date: 20200409
  Serious: Yes (Hospitalization)
  Sender: FDA-Public Use
  Company Number: CA-PFIZER INC-2020112508

PATIENT
  Age: 7 Year
  Sex: Male
  Weight: 29 kg

DRUGS (2)
  1. IBUPROFEN. [Suspect]
     Active Substance: IBUPROFEN
     Indication: ARTHRITIS
     Dosage: 300 MG, AS NEEDED
     Route: 048
  2. AMOXICILLIN. [Suspect]
     Active Substance: AMOXICILLIN
     Dosage: UNK, 3X/DAY
     Route: 048

REACTIONS (4)
  - Angioedema [Recovered/Resolved]
  - Erythema multiforme [Recovered/Resolved]
  - Serum sickness-like reaction [Recovered/Resolved]
  - Arthritis [Recovered/Resolved]
